FAERS Safety Report 6143521-6 (Version None)
Quarter: 2009Q2

REPORT INFORMATION
  Report Type: 
  Country: None (occurrence: None)
  Receive Date: 20090403
  Receipt Date: 20090330
  Transmission Date: 20091009
  Serious: Yes (Hospitalization)
  Sender: FDA-Public Use
  Company Number: CA-ASTRAZENECA-2009UW08068

PATIENT
  Age: 72 Year
  Sex: Female

DRUGS (12)
  1. CRESTOR [Suspect]
     Route: 048
  2. CRESTOR [Suspect]
     Route: 048
  3. LIPITOR [Concomitant]
  4. ACTONEL [Concomitant]
     Indication: OSTEOPOROSIS
  5. DIOVAN [Concomitant]
     Indication: HYPERTENSION
  6. ALTACE [Concomitant]
     Indication: HYPERTENSION
  7. METFORMIN HCL [Concomitant]
     Indication: DIABETES MELLITUS
  8. NORVASC [Concomitant]
     Indication: HYPERTENSION
  9. APO-BISOPROLOL [Concomitant]
  10. ASPIRIN [Concomitant]
  11. VITAMIN D [Concomitant]
  12. CALCIUM [Concomitant]

REACTIONS (3)
  - ECZEMA [None]
  - PRURITUS [None]
  - VASCULAR GRAFT [None]
